FAERS Safety Report 8331721-6 (Version None)
Quarter: 2012Q2

REPORT INFORMATION
  Report Type: 
  Country: None (occurrence: None)
  Receive Date: 20120502
  Receipt Date: 20110829
  Transmission Date: 20120825
  Serious: No
  Sender: FDA-Public Use
  Company Number: US-ASTRAZENECA-2011SE51769

PATIENT
  Age: 81 Year
  Sex: Female
  Weight: 61.2 kg

DRUGS (6)
  1. CARDIA XT [Concomitant]
     Indication: BLOOD PRESSURE ABNORMAL
  2. ENALAPRIL MALEATE [Concomitant]
     Indication: BLOOD CHOLESTEROL ABNORMAL
  3. OXYGUTNIN ER [Concomitant]
     Indication: URINARY INCONTINENCE
  4. ENTOCORT EC [Suspect]
     Indication: COLITIS
     Route: 048
  5. ENTOCORT EC [Suspect]
     Dosage: 3 CAPSULE AT NIGHT
     Route: 048
  6. ENTOCORT EC [Suspect]
     Dosage: 2 CAPSULE AT NIGHT
     Route: 048

REACTIONS (3)
  - DYSPEPSIA [None]
  - DRUG DOSE OMISSION [None]
  - MALAISE [None]
